FAERS Safety Report 5098869-3 (Version None)
Quarter: 2006Q3

REPORT INFORMATION
  Report Type: 
  Country: None (occurrence: None)
  Receive Date: 20060905
  Receipt Date: 20060823
  Transmission Date: 20061208
  Serious: Yes (Other)
  Sender: FDA-Public Use
  Company Number: 2006SP000007

PATIENT
  Sex: Female

DRUGS (1)
  1. NASONEX [Suspect]

REACTIONS (5)
  - CHEST DISCOMFORT [None]
  - DIARRHOEA [None]
  - LOSS OF CONSCIOUSNESS [None]
  - NASAL DISCOMFORT [None]
  - VOMITING [None]
